FAERS Safety Report 16696297 (Version 5)
Quarter: 2019Q4

REPORT INFORMATION
  Report Type: Spontaneous
  Country: US (occurrence: US)
  Receive Date: 20190813
  Receipt Date: 20191030
  Transmission Date: 20200122
  Serious: Yes (Hospitalization, Other)
  Sender: FDA-Public Use
  Company Number: US-AJANTA PHARMA USA INC.-2073075

PATIENT
  Age: 70 Year
  Sex: Female
  Weight: 62.73 kg

DRUGS (15)
  1. MULTIVITAMIN [Concomitant]
     Active Substance: VITAMINS
     Route: 048
  2. ALBUTEROL. [Concomitant]
     Active Substance: ALBUTEROL
  3. ZOSYN [Concomitant]
     Active Substance: PIPERACILLIN SODIUM\TAZOBACTAM SODIUM
     Dates: start: 201902, end: 20190530
  4. BACLOFEN. [Concomitant]
     Active Substance: BACLOFEN
  5. TOBRAMYCIN. [Concomitant]
     Active Substance: TOBRAMYCIN
  6. PROBIOTIC PO [Concomitant]
     Route: 048
  7. PROVENTIL VENTOLIN [Concomitant]
     Dates: end: 20190901
  8. ADVIL [Concomitant]
     Active Substance: IBUPROFEN
     Route: 048
     Dates: end: 20190803
  9. NORVASC [Concomitant]
     Active Substance: AMLODIPINE BESYLATE
  10. BENTYL [Concomitant]
     Active Substance: DICYCLOMINE HYDROCHLORIDE
     Route: 048
  11. TYLENOL [Concomitant]
     Active Substance: ACETAMINOPHEN
     Route: 048
  12. CEFTAZIDIME. [Concomitant]
     Active Substance: CEFTAZIDIME
  13. VITAMIN C [Concomitant]
     Active Substance: ASCORBIC ACID
     Route: 048
  14. VORICONAZOLE. [Suspect]
     Active Substance: VORICONAZOLE
     Indication: BRONCHOPULMONARY ASPERGILLOSIS
     Route: 048
     Dates: start: 201904
  15. COMBIVENT RESPIMAT [Concomitant]
     Active Substance: ALBUTEROL SULFATE\IPRATROPIUM BROMIDE

REACTIONS (18)
  - Hypoaesthesia oral [Not Recovered/Not Resolved]
  - Anxiety [Not Recovered/Not Resolved]
  - Pollakiuria [Not Recovered/Not Resolved]
  - Colitis ulcerative [Unknown]
  - Gingival pain [Not Recovered/Not Resolved]
  - Clostridium difficile colitis [Unknown]
  - Hypophosphataemia [Recovered/Resolved]
  - Nasal inflammation [Not Recovered/Not Resolved]
  - Alopecia [Not Recovered/Not Resolved]
  - Epistaxis [Not Recovered/Not Resolved]
  - Weight increased [Not Recovered/Not Resolved]
  - Nasal septum perforation [Not Recovered/Not Resolved]
  - Increased appetite [Recovering/Resolving]
  - Insomnia [Not Recovered/Not Resolved]
  - Depression [Recovering/Resolving]
  - Hyperhidrosis [Not Recovered/Not Resolved]
  - Iron deficiency anaemia [Unknown]
  - Hypokalaemia [Recovered/Resolved]

NARRATIVE: CASE EVENT DATE: 2019
